FAERS Safety Report 11939634 (Version 1)
Quarter: 2016Q1

REPORT INFORMATION
  Report Type: Spontaneous
  Country: CN (occurrence: CN)
  Receive Date: 20160122
  Receipt Date: 20160122
  Transmission Date: 20160526
  Serious: Yes (Hospitalization, Other)
  Sender: FDA-Public Use
  Company Number: CN-BAYER-2016-005953

PATIENT
  Age: 51 Year
  Sex: Female

DRUGS (1)
  1. AVELOX [Suspect]
     Active Substance: MOXIFLOXACIN HYDROCHLORIDE
     Dosage: 400 MG, UNK
     Dates: start: 20141215

REACTIONS (9)
  - Hypoaesthesia oral [None]
  - Muscle tightness [None]
  - Dyskinesia [Recovered/Resolved]
  - Hypoaesthesia [None]
  - Muscle rigidity [None]
  - Hypoaesthesia [Recovered/Resolved]
  - Dizziness [None]
  - Hypoaesthesia oral [None]
  - Chest discomfort [None]

NARRATIVE: CASE EVENT DATE: 20141215
